FAERS Safety Report 18202617 (Version 1)
Quarter: 2020Q3

REPORT INFORMATION
  Report Type: Other
  Country: US (occurrence: US)
  Receive Date: 20200827
  Receipt Date: 20200827
  Transmission Date: 20201103
  Serious: Yes (Other)
  Sender: FDA-Public Use
  Company Number: US-ROCHE-2661951

PATIENT
  Age: 44 Year
  Sex: Female
  Weight: 68.1 kg

DRUGS (15)
  1. VITAMIN D3 [Concomitant]
     Active Substance: CHOLECALCIFEROL
     Indication: VITAMIN D DECREASED
     Dosage: ONGOING: YES
  2. TURMERIC [Concomitant]
     Active Substance: HERBALS\TURMERIC
     Indication: INFLAMMATION
     Dosage: OVER THE COUNTER ;ONGOING: YES
  3. TRIAMTERENE HCTZ [Concomitant]
     Active Substance: HYDROCHLOROTHIAZIDE\TRIAMTERENE
     Indication: OEDEMA PERIPHERAL
     Dosage: 37.5 MG/25 MG ;ONGOING: YES
  4. OCREVUS [Suspect]
     Active Substance: OCRELIZUMAB
     Indication: RELAPSING MULTIPLE SCLEROSIS
     Dosage: YES
     Route: 042
  5. TIZANIDINE HCL [Concomitant]
     Active Substance: TIZANIDINE HYDROCHLORIDE
     Indication: MUSCULOSKELETAL STIFFNESS
     Dosage: ONE ADDITIONAL DOSE IN THE AFTERNOON (AS NEEDED) ;ONGOING: YES
  6. BENADRYL [Concomitant]
     Active Substance: DIPHENHYDRAMINE HYDROCHLORIDE
     Indication: PREMEDICATION
     Dosage: ONGOING: UNKNOWN
     Route: 042
  7. VITAMIN C [Concomitant]
     Active Substance: ASCORBIC ACID
     Dosage: ONGOING: YES
  8. VENLAFAXINE [Concomitant]
     Active Substance: VENLAFAXINE HYDROCHLORIDE
     Indication: ANXIETY
  9. ZYRTEC (UNITED STATES) [Concomitant]
     Indication: SEASONAL ALLERGY
     Dosage: ONGOING: YES
  10. OCREVUS [Suspect]
     Active Substance: OCRELIZUMAB
     Indication: MULTIPLE SCLEROSIS
     Dosage: HALF DOSE (FOR TWO DOSES) ;ONGOING: NO
     Route: 042
     Dates: start: 20170401
  11. DEXTROAMPHETAMINE. [Concomitant]
     Active Substance: DEXTROAMPHETAMINE
     Indication: FATIGUE
     Dosage: ONGOING: YES
  12. ZINC PICOLINATE [Concomitant]
     Active Substance: ZINC PICOLINATE
     Dosage: 2?3 TIMES PER WEEK ;ONGOING: YES
  13. ROGAINE [Concomitant]
     Active Substance: MINOXIDIL
     Indication: ALOPECIA
     Dosage: ONGOING: NO
  14. DALFAMPRIDINE. [Concomitant]
     Active Substance: DALFAMPRIDINE
     Dosage: ONGOING: YES
  15. GABAPENTIN. [Concomitant]
     Active Substance: GABAPENTIN
     Indication: MUSCLE SPASMS
     Dosage: ONGOING: YES

REACTIONS (12)
  - Alopecia [Not Recovered/Not Resolved]
  - Vitamin D decreased [Unknown]
  - Gait disturbance [Unknown]
  - Anxiety [Unknown]
  - Fatigue [Unknown]
  - Muscle spasms [Not Recovered/Not Resolved]
  - Stress [Unknown]
  - Helicobacter infection [Unknown]
  - Colitis [Unknown]
  - Epstein-Barr virus test positive [Unknown]
  - Memory impairment [Not Recovered/Not Resolved]
  - Candida infection [Unknown]

NARRATIVE: CASE EVENT DATE: 201804
